FAERS Safety Report 9994978 (Version 1)
Quarter: 2014Q1

REPORT INFORMATION
  Report Type: Spontaneous
  Country: US (occurrence: None)
  Receive Date: 20140307
  Receipt Date: 20140307
  Transmission Date: 20141002
  Serious: Yes (Other)
  Sender: FDA-Public Use
  Company Number: None

PATIENT
  Age: 71 Year
  Sex: Female
  Weight: 78.47 kg

DRUGS (7)
  1. BENZONATATE [Suspect]
     Indication: COUGH
     Route: 048
     Dates: start: 20140120, end: 20140121
  2. TRAMADOL [Concomitant]
  3. ALBUTEROL [Concomitant]
  4. MULTIVITAMIN [Concomitant]
  5. SALMON OIL [Concomitant]
  6. SALINE NASAL SPRAY [Concomitant]
  7. PRILOSEC OTC [Concomitant]

REACTIONS (2)
  - Dizziness [None]
  - Presyncope [None]
